FAERS Safety Report 7454072-0 (Version None)
Quarter: 2011Q2

REPORT INFORMATION
  Report Type: 
  Country: None (occurrence: None)
  Receive Date: 20110502
  Receipt Date: 20110426
  Transmission Date: 20111010
  Serious: Yes (Other)
  Sender: FDA-Public Use
  Company Number: SE-GENENTECH-317564

PATIENT
  Sex: Female

DRUGS (1)
  1. NUTROPIN AQ [Suspect]
     Indication: GROWTH RETARDATION
     Dosage: 1.2 MG, QD
     Route: 058
     Dates: start: 20090123

REACTIONS (1)
  - INFLAMMATORY BOWEL DISEASE [None]
